FAERS Safety Report 18376018 (Version 2)
Quarter: 2020Q4

REPORT INFORMATION
  Report Type: Spontaneous
  Country: US (occurrence: US)
  Receive Date: 20201013
  Receipt Date: 20201130
  Transmission Date: 20210114
  Serious: Yes (Hospitalization, Other)
  Sender: FDA-Public Use
  Company Number: US-LUPIN PHARMACEUTICALS INC.-2020-07110

PATIENT
  Age: 54 Year
  Sex: Male

DRUGS (4)
  1. TICAGRELOR. [Interacting]
     Active Substance: TICAGRELOR
     Indication: ACUTE MYOCARDIAL INFARCTION
     Dosage: 40 MILLIGRAM, QD
     Route: 065
     Dates: start: 2018
  2. ATORVASTATIN CALCIUM. [Suspect]
     Active Substance: ATORVASTATIN CALCIUM
     Indication: ACUTE MYOCARDIAL INFARCTION
     Dosage: 40 MILLIGRAM, QD
     Route: 065
     Dates: start: 2018
  3. CLOPIDOGREL [Concomitant]
     Active Substance: CLOPIDOGREL BISULFATE
     Indication: ACUTE MYOCARDIAL INFARCTION
     Dosage: UNK
     Route: 065
  4. METOPROLOL. [Concomitant]
     Active Substance: METOPROLOL
     Indication: ACUTE MYOCARDIAL INFARCTION
     Dosage: UNK
     Route: 065
     Dates: start: 2018

REACTIONS (15)
  - Gait disturbance [Recovered/Resolved]
  - Dyspnoea [Recovered/Resolved]
  - Myopathy [Recovered/Resolved]
  - Transaminases increased [Recovered/Resolved]
  - Drug interaction [Recovered/Resolved with Sequelae]
  - Subarachnoid haemorrhage [Recovering/Resolving]
  - Syncope [Recovered/Resolved]
  - Myalgia [Recovered/Resolved]
  - Autoimmune myositis [Recovered/Resolved]
  - Condition aggravated [Recovered/Resolved]
  - Muscular weakness [Recovered/Resolved]
  - Fall [Recovered/Resolved]
  - Dysphagia [Recovered/Resolved]
  - Muscle necrosis [Recovered/Resolved with Sequelae]
  - Haematoma [Recovering/Resolving]

NARRATIVE: CASE EVENT DATE: 201810
